FAERS Safety Report 6110457-6 (Version None)
Quarter: 2009Q1

REPORT INFORMATION
  Report Type: 
  Country: None (occurrence: None)
  Receive Date: 20090310
  Receipt Date: 20090224
  Transmission Date: 20090719
  Serious: Yes (Other)
  Sender: FDA-Public Use
  Company Number: CA-PURDUE-CAN_2009_0000918

PATIENT
  Age: 48 Year

DRUGS (1)
  1. HYDROMORPH CONTIN 24 MG [Suspect]
     Indication: DRUG USE FOR UNKNOWN INDICATION
     Dosage: 1 CAPSL, Q12H
     Route: 048

REACTIONS (1)
  - DRUG EFFECT DECREASED [None]
